FAERS Safety Report 15123374 (Version 2)
Quarter: 2018Q3

REPORT INFORMATION
  Report Type: Spontaneous
  Country: US (occurrence: US)
  Receive Date: 20180709
  Receipt Date: 20180828
  Transmission Date: 20181010
  Serious: Yes (Other)
  Sender: FDA-Public Use
  Company Number: PHEH2018US027225

PATIENT
  Age: 71 Year
  Sex: Female

DRUGS (1)
  1. VOTRIENT [Suspect]
     Active Substance: PAZOPANIB HYDROCHLORIDE
     Indication: RENAL CANCER
     Dosage: 3 DF, QD (600 MG)
     Route: 048
     Dates: start: 20180605

REACTIONS (6)
  - Intestinal haemorrhage [Unknown]
  - Gastrointestinal motility disorder [Unknown]
  - Ageusia [Unknown]
  - Stomatitis [Unknown]
  - Liver disorder [Unknown]
  - Epistaxis [Unknown]

NARRATIVE: CASE EVENT DATE: 20180629
